FAERS Safety Report 12261239 (Version 1)
Quarter: 2016Q2

REPORT INFORMATION
  Report Type: Spontaneous
  Country: US (occurrence: None)
  Receive Date: 20160412
  Receipt Date: 20160412
  Transmission Date: 20160815
  Serious: Yes (Hospitalization, Other)
  Sender: FDA-Public Use
  Company Number: None

PATIENT
  Age: 32 Year
  Sex: Female

DRUGS (2)
  1. LEVETIRACTAM, 500 MG [Suspect]
     Active Substance: LEVETIRACETAM
     Indication: EPILEPSY
  2. LAMOTRIGINE, 150 MG/ 200 MG [Suspect]
     Active Substance: LAMOTRIGINE
     Indication: EPILEPSY

REACTIONS (7)
  - Weight bearing difficulty [None]
  - Mydriasis [None]
  - Gait disturbance [None]
  - Head injury [None]
  - Fall [None]
  - Musculoskeletal disorder [None]
  - Balance disorder [None]

NARRATIVE: CASE EVENT DATE: 20160408
